FAERS Safety Report 6742029-4 (Version None)
Quarter: 2010Q2

REPORT INFORMATION
  Report Type: 
  Country: None (occurrence: None)
  Receive Date: 20100524
  Receipt Date: 20100506
  Transmission Date: 20101027
  Serious: Yes (Hospitalization)
  Sender: FDA-Public Use
  Company Number: CV20100232

PATIENT
  Age: 55 Year
  Sex: Female

DRUGS (8)
  1. FUROSEMIDE [Suspect]
     Indication: DRUG USE FOR UNKNOWN INDICATION
  2. RISPSRIDONE (RISPERIDONE) (RISPERIDONE) [Concomitant]
  3. FERROUS SULPHATE (FERROUS SULFATE) (FERROUS SULFATE) [Concomitant]
  4. INSULIN (INSULIN) (INSULIN) [Concomitant]
  5. LEVOTHYROXINE (LEVOTHYROXINE) (LEVOTHYROXINE) [Concomitant]
  6. NORETHISTERONE (NORETHISTERONE) (NORETHISTERONE) [Concomitant]
  7. PROCYCLIDINE (PROCYCLIDINE) (PROCYCLIDINE) [Concomitant]
  8. SIMVASTATIN [Concomitant]

REACTIONS (5)
  - CONDITION AGGRAVATED [None]
  - DEHYDRATION [None]
  - DRUG INEFFECTIVE [None]
  - PSYCHOTIC DISORDER [None]
  - RENAL FAILURE ACUTE [None]
